FAERS Safety Report 9698777 (Version 3)
Quarter: 2013Q4

REPORT INFORMATION
  Report Type: Spontaneous
  Country: US (occurrence: US)
  Receive Date: 20131120
  Receipt Date: 20131205
  Transmission Date: 20140711
  Serious: Yes (Hospitalization, Other)
  Sender: FDA-Public Use
  Company Number: ALCN2013US005713

PATIENT
  Sex: Male

DRUGS (5)
  1. TIMOLOL MALEATE [Suspect]
     Dosage: 1 GTT, QD
     Route: 047
     Dates: start: 2005
  2. TIMOLOL MALEATE [Suspect]
     Dosage: 1 DF, UNK
     Route: 047
     Dates: start: 2012, end: 2013
  3. TIMOLOL MALEATE [Suspect]
     Dosage: 1 GTT, QD
     Route: 047
     Dates: start: 20131025, end: 20131101
  4. XALATAN [Concomitant]
     Dosage: 1 GTT, QD
     Route: 047
  5. METOPROLOL [Concomitant]
     Indication: CARDIAC DISORDER
     Dosage: 1 DF, UNK
     Route: 048

REACTIONS (9)
  - Pyrexia [Recovered/Resolved]
  - Decreased appetite [Recovering/Resolving]
  - Weight decreased [Unknown]
  - Dry mouth [Recovering/Resolving]
  - Dyspnoea [Recovering/Resolving]
  - Anaemia [Not Recovered/Not Resolved]
  - Decreased activity [Not Recovered/Not Resolved]
  - Myeloproliferative disorder [Not Recovered/Not Resolved]
  - Chills [Unknown]
